FAERS Safety Report 4402270-2 (Version None)
Quarter: 2004Q3

REPORT INFORMATION
  Report Type: 
  Country: None (occurrence: None)
  Receive Date: 20040720
  Receipt Date: 20040714
  Transmission Date: 20050211
  Serious: Yes (Hospitalization)
  Sender: FDA-Public Use
  Company Number: US-GLAXOSMITHKLINE-A0518213A

PATIENT
  Sex: Female

DRUGS (3)
  1. PAXIL [Suspect]
     Indication: DEPRESSION
     Dosage: 30MG PER DAY
     Route: 048
  2. RESTORIL [Suspect]
  3. ARICEPT [Concomitant]

REACTIONS (6)
  - ABDOMINAL DISTENSION [None]
  - DRUG WITHDRAWAL SYNDROME [None]
  - SPEECH DISORDER [None]
  - SURGERY [None]
  - TREMOR [None]
  - VOLVULUS OF BOWEL [None]
